FAERS Safety Report 22136319 (Version 2)
Quarter: 2024Q4

REPORT INFORMATION
  Report Type: Other
  Country: IT (occurrence: IT)
  Receive Date: 20230324
  Receipt Date: 20241227
  Transmission Date: 20250114
  Serious: Yes (Other)
  Sender: EMD SERONO INC
  Company Number: IT-MLMSERVICE-20190326-0019640-1

PATIENT
  Age: 31 Year
  Sex: Female

DRUGS (8)
  1. PROGESTERONE [Suspect]
     Active Substance: PROGESTERONE
     Indication: In vitro fertilisation
  2. CHORIOGONADOTROPIN ALFA [Suspect]
     Active Substance: CHORIOGONADOTROPIN ALFA
     Indication: Ovarian hyperstimulation syndrome
  3. CHORIOGONADOTROPIN ALFA [Suspect]
     Active Substance: CHORIOGONADOTROPIN ALFA
     Indication: Artificial insemination
  4. BUSERELIN [Suspect]
     Active Substance: BUSERELIN
     Indication: In vitro fertilisation
  5. BUSERELIN [Suspect]
     Active Substance: BUSERELIN
  6. UROFOLLITROPIN [Suspect]
     Active Substance: UROFOLLITROPIN
     Indication: Ovarian hyperstimulation syndrome
  7. UROFOLLITROPIN [Suspect]
     Active Substance: UROFOLLITROPIN
     Indication: Artificial insemination
  8. LUVERIS [Concomitant]
     Active Substance: LUTROPIN ALFA
     Indication: Product used for unknown indication
     Dosage: GIVEN TO THE PATIENT FOUR DAYS AFTER THE BEGINNING OF MENSTRUAL CYCLE

REACTIONS (1)
  - Choroidal neovascularisation [Recovered/Resolved]
